FAERS Safety Report 15448992 (Version 1)
Quarter: 2018Q3

REPORT INFORMATION
  Report Type: Spontaneous
  Country: US (occurrence: US)
  Receive Date: 20180926
  Receipt Date: 20180926
  Transmission Date: 20181010
  Serious: No
  Sender: FDA-Public Use
  Company Number: None

PATIENT
  Age: 33 Year
  Sex: Female

DRUGS (1)
  1. REBIF REBIDOSE [Suspect]
     Active Substance: INTERFERON BETA-1A
     Indication: MULTIPLE SCLEROSIS
     Dates: start: 20170808

REACTIONS (7)
  - Fatigue [None]
  - Headache [None]
  - Arthralgia [None]
  - Insurance issue [None]
  - Therapy cessation [None]
  - Influenza like illness [None]
  - Malaise [None]

NARRATIVE: CASE EVENT DATE: 20180925
